FAERS Safety Report 8547289-5 (Version None)
Quarter: 2012Q3

REPORT INFORMATION
  Report Type: 
  Country: None (occurrence: None)
  Receive Date: 20120727
  Receipt Date: 20120315
  Transmission Date: 20120928
  Serious: No
  Sender: FDA-Public Use
  Company Number: US-ASTRAZENECA-2012SE17888

PATIENT
  Age: 42 Year
  Sex: Female

DRUGS (3)
  1. SEROQUEL XR [Suspect]
     Indication: BIPOLAR DISORDER
     Route: 048
  2. NEURONTIN [Concomitant]
  3. VISTARIL [Concomitant]

REACTIONS (6)
  - NERVOUSNESS [None]
  - FEELING ABNORMAL [None]
  - SEDATION [None]
  - NAUSEA [None]
  - VOMITING [None]
  - PALLOR [None]
